FAERS Safety Report 5835503-6 (Version None)
Quarter: 2008Q3

REPORT INFORMATION
  Report Type: 
  Country: None (occurrence: None)
  Receive Date: 20080806
  Receipt Date: 20080725
  Transmission Date: 20090109
  Serious: Yes (Other)
  Sender: FDA-Public Use
  Company Number: A0351809A

PATIENT
  Age: 46 Year
  Sex: Male
  Weight: 117.91 kg

DRUGS (2)
  1. PAXIL [Suspect]
     Indication: ANXIETY
     Dosage: 20MG TWICE PER DAY
     Route: 048
     Dates: start: 19950801, end: 20030501
  2. XANAX [Concomitant]

REACTIONS (18)
  - AGGRESSION [None]
  - ANGER [None]
  - ANHEDONIA [None]
  - DISTURBANCE IN ATTENTION [None]
  - DIZZINESS [None]
  - EYE MOVEMENT DISORDER [None]
  - GAIT DISTURBANCE [None]
  - HOMICIDAL IDEATION [None]
  - HYPOAESTHESIA [None]
  - IMPRISONMENT [None]
  - INSOMNIA [None]
  - LIBIDO DECREASED [None]
  - MENTAL DISORDER [None]
  - NAUSEA [None]
  - PARAESTHESIA [None]
  - RESTLESSNESS [None]
  - TINNITUS [None]
  - WITHDRAWAL SYNDROME [None]
